FAERS Safety Report 14934306 (Version 1)
Quarter: 2018Q2

REPORT INFORMATION
  Report Type: Spontaneous
  Country: DE (occurrence: DE)
  Receive Date: 20180524
  Receipt Date: 20180524
  Transmission Date: 20180711
  Serious: Yes (Other)
  Sender: FDA-Public Use
  Company Number: DE-MYLANLABS-2018M1035166

PATIENT
  Sex: Female
  Weight: 85 kg

DRUGS (1)
  1. ARIXTRA [Suspect]
     Active Substance: FONDAPARINUX SODIUM
     Indication: ATRIAL FIBRILLATION
     Dosage: 1X5MG (2X2.5MG AT GFR OF 39)

REACTIONS (2)
  - Haemorrhage [Unknown]
  - Off label use [Unknown]
